FAERS Safety Report 9796683 (Version 1)
Quarter: 2014Q1

REPORT INFORMATION
  Report Type: Spontaneous
  Country: US (occurrence: US)
  Receive Date: 20140103
  Receipt Date: 20140103
  Transmission Date: 20141002
  Serious: Yes (Hospitalization)
  Sender: FDA-Public Use
  Company Number: PHHY2013US152520

PATIENT
  Age: 68 Year
  Sex: Female

DRUGS (5)
  1. HYDROMORPHONE [Suspect]
     Indication: BACK PAIN
     Route: 048
  2. HYDROMORPHONE [Suspect]
     Dosage: 2.2 MG, PER DAY
     Route: 037
  3. METHADONE [Suspect]
     Indication: BACK PAIN
     Dosage: 20 MG, DAILY
     Route: 048
  4. MORPHINE [Suspect]
     Indication: BACK PAIN
     Route: 037
  5. BUPIVACAINE [Concomitant]
     Dosage: 2.2 MG, PER DAY
     Route: 037

REACTIONS (14)
  - Oedema peripheral [Recovered/Resolved]
  - Blood pressure increased [Recovering/Resolving]
  - Weight increased [Recovering/Resolving]
  - Arthralgia [Recovering/Resolving]
  - Polyuria [Recovering/Resolving]
  - Agitation [Recovering/Resolving]
  - Nausea [Recovering/Resolving]
  - Diarrhoea [Recovering/Resolving]
  - Anxiety [Recovering/Resolving]
  - Dysgeusia [Recovering/Resolving]
  - Parosmia [Recovering/Resolving]
  - Decreased appetite [Recovering/Resolving]
  - Back pain [Recovering/Resolving]
  - Drug withdrawal syndrome [Unknown]
